FAERS Safety Report 9088042 (Version 5)
Quarter: 2013Q3

REPORT INFORMATION
  Report Type: Spontaneous
  Country: GB (occurrence: GB)
  Receive Date: 20130201
  Receipt Date: 20130912
  Transmission Date: 20140515
  Serious: Yes (Disabling, Congenital Anomaly)
  Sender: FDA-Public Use
  Company Number: GB-PFIZER INC-2013040006

PATIENT
  Sex: Female

DRUGS (12)
  1. ISTIN [Suspect]
     Dosage: UNK
     Route: 064
  2. HALOPERIDOL [Suspect]
     Dosage: UNK
     Route: 064
  3. DISIPAL [Suspect]
     Dosage: UNK
     Route: 064
  4. VALIUM [Suspect]
     Dosage: UNK
     Route: 064
  5. DEPIXOL [Suspect]
     Dosage: UNK
     Route: 064
  6. RELACTON-C [Suspect]
     Dosage: UNK
     Route: 064
  7. KEMADRIN [Suspect]
     Dosage: UNK
     Route: 064
  8. NORMAXIN [Suspect]
     Dosage: UNK
     Route: 064
  9. SURMONTIL [Suspect]
     Dosage: UNK
     Route: 064
  10. SPARINE [Suspect]
     Dosage: UNK
     Route: 064
  11. DROLEPTAN [Suspect]
     Dosage: UNK
     Route: 064
  12. NORMISON [Suspect]
     Dosage: UNK

REACTIONS (2)
  - Maternal exposure before pregnancy [Unknown]
  - Pierre Robin syndrome [Unknown]
